FAERS Safety Report 7164478-5 (Version None)
Quarter: 2010Q4

REPORT INFORMATION
  Report Type: 
  Country: None (occurrence: None)
  Receive Date: 20101215
  Receipt Date: 20101203
  Transmission Date: 20110411
  Serious: Yes (Hospitalization)
  Sender: FDA-Public Use
  Company Number: PHHY2010US83141

PATIENT
  Sex: Female

DRUGS (1)
  1. GLEEVEC [Suspect]
     Indication: ACUTE LYMPHOCYTIC LEUKAEMIA
     Dosage: 500 MG DAILY
     Route: 048
     Dates: start: 20100526

REACTIONS (4)
  - BRONCHITIS [None]
  - DYSPNOEA [None]
  - KIDNEY INFECTION [None]
  - PAIN IN EXTREMITY [None]
